FAERS Safety Report 14310137 (Version 8)
Quarter: 2018Q2

REPORT INFORMATION
  Report Type: Spontaneous
  Country: DE (occurrence: DE)
  Receive Date: 20171220
  Receipt Date: 20180517
  Transmission Date: 20180711
  Serious: Yes (Other)
  Sender: FDA-Public Use
  Company Number: PHHY2017DE184749

PATIENT
  Age: 79 Year
  Sex: Female

DRUGS (2)
  1. LEFLUNOMIDE. [Suspect]
     Active Substance: LEFLUNOMIDE
     Indication: RHEUMATOID ARTHRITIS
     Dosage: 20 MG, QD
     Route: 048
  2. PREDNISOLONE. [Suspect]
     Active Substance: PREDNISOLONE
     Indication: RHEUMATOID ARTHRITIS
     Dosage: 5 MG, QD
     Route: 048

REACTIONS (5)
  - Malignant neoplasm of conjunctiva [Recovering/Resolving]
  - Hypopyon [Unknown]
  - Corneal scar [Unknown]
  - Ulcerative keratitis [Recovering/Resolving]
  - Metastases to lymph nodes [Unknown]
